FAERS Safety Report 23209797 (Version 1)
Quarter: 2023Q4

REPORT INFORMATION
  Report Type: Spontaneous
  Country: JP (occurrence: JP)
  Receive Date: 20231121
  Receipt Date: 20231121
  Transmission Date: 20240109
  Serious: Yes (Other)
  Sender: FDA-Public Use
  Company Number: JP-PFIZER INC-PV202300184108

PATIENT
  Sex: Female

DRUGS (1)
  1. ENBREL [Suspect]
     Active Substance: ETANERCEPT
     Indication: Product used for unknown indication
     Dosage: 1 DF, WEEKLY(ONCE WEEKLY)
     Route: 058

REACTIONS (5)
  - Epistaxis [Recovered/Resolved]
  - Internal haemorrhage [Unknown]
  - Pain [Unknown]
  - Injection site haemorrhage [Recovered/Resolved]
  - Off label use [Unknown]
